FAERS Safety Report 16996838 (Version 1)
Quarter: 2019Q4

REPORT INFORMATION
  Report Type: Spontaneous
  Country: FR (occurrence: FR)
  Receive Date: 20191105
  Receipt Date: 20191105
  Transmission Date: 20200122
  Serious: Yes (Hospitalization, Other)
  Sender: FDA-Public Use
  Company Number: FR-OTSUKA-2019_037511

PATIENT
  Age: 71 Year
  Sex: Male

DRUGS (2)
  1. ARIPIPRAZOLE. [Suspect]
     Active Substance: ARIPIPRAZOLE
     Indication: SCHIZOPHRENIA
     Dosage: 0.5 MG, QD
     Route: 065
  2. ARIPIPRAZOLE. [Suspect]
     Active Substance: ARIPIPRAZOLE
     Dosage: 0.5 MG, BID
     Route: 065
     Dates: end: 20191023

REACTIONS (8)
  - Fatigue [Unknown]
  - Insomnia [Unknown]
  - Constipation [Unknown]
  - Urinary incontinence [Unknown]
  - Prescribed underdose [Unknown]
  - Inappropriate schedule of product administration [Unknown]
  - Haemorrhage [Unknown]
  - Urinary tract disorder [Unknown]
